FAERS Safety Report 6883760-X (Version None)
Quarter: 2010Q3

REPORT INFORMATION
  Report Type: 
  Country: None (occurrence: None)
  Receive Date: 20100729
  Receipt Date: 20100721
  Transmission Date: 20110219
  Serious: Yes (Other)
  Sender: FDA-Public Use
  Company Number: B0667252A

PATIENT
  Sex: Male

DRUGS (1)
  1. AMOXICILLIN AND CLAVULANATE POTASSIUM [Suspect]
     Indication: TONSILLITIS
     Route: 048
     Dates: start: 20031211

REACTIONS (2)
  - PERIORBITAL OEDEMA [None]
  - URTICARIA [None]
